FAERS Safety Report 5565084-6 (Version None)
Quarter: 2007Q4

REPORT INFORMATION
  Report Type: 
  Country: None (occurrence: None)
  Receive Date: 20071203
  Receipt Date: 20071203
  Transmission Date: 20080405
  Serious: Yes (Other)
  Sender: FDA-Public Use
  Company Number: 2007S1012840

PATIENT
  Age: 14 Year
  Sex: Female

DRUGS (2)
  1. ISOTRETINOIN [Suspect]
     Dosage: 40 MG; EVERY OTHER DAY; ORAL, 80 MG; EVERY OTHER DAY; ORAL
     Route: 048
     Dates: start: 20070312, end: 20070612
  2. ISOTRETINOIN [Suspect]
     Dosage: 40 MG; EVERY OTHER DAY; ORAL, 80 MG; EVERY OTHER DAY; ORAL
     Route: 048
     Dates: start: 20070312, end: 20070612

REACTIONS (3)
  - DRUG EXPOSURE DURING PREGNANCY [None]
  - PREGNANCY [None]
  - TREATMENT NONCOMPLIANCE [None]
